FAERS Safety Report 26021060 (Version 2)
Quarter: 2025Q4

REPORT INFORMATION
  Report Type: Report from Study
  Country: BR (occurrence: BR)
  Receive Date: 20251110
  Receipt Date: 20251120
  Transmission Date: 20260117
  Serious: Yes (Life-Threatening, Hospitalization)
  Sender: AMGEN
  Company Number: BR-AMGEN-BRASL2025149989

PATIENT
  Age: 62 Year
  Sex: Female

DRUGS (7)
  1. BLINCYTO [Suspect]
     Active Substance: BLINATUMOMAB
     Indication: Acute lymphocytic leukaemia
     Dosage: UNK, INFUSION PUMP
     Route: 065
     Dates: start: 20250203
  2. PONATINIB [Suspect]
     Active Substance: PONATINIB
     Indication: Product used for unknown indication
     Dosage: UNK
     Route: 065
  3. PONATINIB [Suspect]
     Active Substance: PONATINIB
     Dosage: UNK
     Route: 065
     Dates: start: 2025, end: 2025
  4. ROSUVASTATIN [Concomitant]
     Active Substance: ROSUVASTATIN
     Dosage: 10 MILLIGRAM, QD, AT NIGHT
  5. METFORMIN HYDROCHLORIDE [Concomitant]
     Active Substance: METFORMIN HYDROCHLORIDE
     Dosage: 1000 MILLIGRAM, BID (500 MG 2 TABLETS IN THE MORNING AND 2 TABLETS AT NIGHT)
  6. GLICLAZIDE [Concomitant]
     Active Substance: GLICLAZIDE
     Dosage: 30 MILLIGRAM, BID (1 TABLET BEFORE BREAKFAST AND 1 TABLET BEFORE LUNCH)
  7. ATENOLOL [Concomitant]
     Active Substance: ATENOLOL
     Dosage: 25 MILLIGRAM (2 TABLETS PER DAY)

REACTIONS (5)
  - Infusion related reaction [Recovered/Resolved]
  - Memory impairment [Recovering/Resolving]
  - Hypersensitivity [Recovering/Resolving]
  - Infusion site extravasation [Recovering/Resolving]
  - Device physical property issue [Unknown]

NARRATIVE: CASE EVENT DATE: 20250101
